FAERS Safety Report 9476813 (Version 1)
Quarter: 2013Q3

REPORT INFORMATION
  Report Type: Spontaneous
  Country: US (occurrence: US)
  Receive Date: 20130826
  Receipt Date: 20130826
  Transmission Date: 20140515
  Serious: No
  Sender: FDA-Public Use
  Company Number: US-TARO-2013P1004374

PATIENT
  Age: 69 Year
  Sex: Female
  Weight: 64.86 kg

DRUGS (7)
  1. CLOBETASOL PROPIONATE OINTMENT USP 0.05% [Suspect]
     Route: 061
     Dates: start: 2008
  2. CLOBETASOL PROPIONATE OINTMENT USP 0.05% [Suspect]
     Route: 061
     Dates: start: 201302, end: 201303
  3. LIPITOR [Concomitant]
  4. SYNTHROID [Concomitant]
  5. OMEPRAZOLE [Concomitant]
  6. MELOXICAM [Concomitant]
  7. ESTROGEN [Concomitant]

REACTIONS (4)
  - Fistula [Recovering/Resolving]
  - Skin irritation [Recovering/Resolving]
  - Skin swelling [Recovering/Resolving]
  - Pruritus [Recovering/Resolving]
